FAERS Safety Report 7521844-3 (Version None)
Quarter: 2011Q2

REPORT INFORMATION
  Report Type: 
  Country: None (occurrence: None)
  Receive Date: 20110524
  Receipt Date: 20110517
  Transmission Date: 20111010
  Serious: Yes (Death, Hospitalization)
  Sender: FDA-Public Use
  Company Number: WAES 1104USA03005

PATIENT
  Age: 73 Year
  Sex: Female
  Weight: 93.8946 kg

DRUGS (10)
  1. CITRACAL PETITES [Concomitant]
  2. CAP VORINOSTAT 100 MG [Suspect]
     Indication: COLON CANCER METASTATIC
     Dosage: 800 MG/DAILY/PO
     Route: 048
     Dates: start: 20100913, end: 20110406
  3. K-DUR [Concomitant]
  4. FLUOROURACIL [Suspect]
     Indication: COLON CANCER METASTATIC
     Dosage: 1800 MG/M[2]/QW2/IV
     Route: 042
     Dates: start: 20100915, end: 20110407
  5. TRIAMTEREN COMP [Concomitant]
  6. LOSARTAN POTASSIUM [Concomitant]
  7. OXYGEN [Concomitant]
  8. COMPAZINE [Concomitant]
  9. LEUCOVORIN CALCIUM [Suspect]
     Indication: COLON CANCER METASTATIC
     Dosage: IV
     Route: 042
     Dates: end: 20110405
  10. COLACE [Concomitant]

REACTIONS (13)
  - BLOOD CHLORIDE DECREASED [None]
  - NEOPLASM PROGRESSION [None]
  - BLOOD UREA INCREASED [None]
  - DYSPNOEA [None]
  - INFECTION [None]
  - RESPIRATORY FAILURE [None]
  - METASTASES TO LYMPH NODES [None]
  - COLORECTAL CANCER METASTATIC [None]
  - LUNG INFILTRATION [None]
  - PNEUMONITIS [None]
  - BLOOD LACTATE DEHYDROGENASE INCREASED [None]
  - NO THERAPEUTIC RESPONSE [None]
  - COUGH [None]
